FAERS Safety Report 7540356-4 (Version None)
Quarter: 2011Q2

REPORT INFORMATION
  Report Type: 
  Country: None (occurrence: None)
  Receive Date: 20110610
  Receipt Date: 20110527
  Transmission Date: 20111010
  Serious: Yes (Hospitalization)
  Sender: FDA-Public Use
  Company Number: DE-CELGENEUS-062-21880-10070162

PATIENT
  Age: 65 Year
  Sex: Female
  Weight: 68 kg

DRUGS (15)
  1. IBANDRONATE SODIUM [Concomitant]
     Dosage: 80 MILLIGRAM
  2. SEVREDOL [Concomitant]
     Indication: PAIN
     Dosage: 1 TABLET
     Route: 048
     Dates: start: 20061109, end: 20100801
  3. DICLOFENAC SODIUM [Concomitant]
     Indication: PAIN
     Route: 065
     Dates: start: 20100429, end: 20100630
  4. DURAGESIC-100 [Concomitant]
     Indication: PAIN
     Route: 062
     Dates: start: 20060810, end: 20100801
  5. OCTAGAM [Concomitant]
     Dosage: 80 MILLIGRAM
  6. ABSCESS OINTMENT [Concomitant]
     Indication: PAIN
     Route: 065
     Dates: start: 20100429
  7. DICLOFENAC SODIUM [Concomitant]
     Dosage: 80 MILLIGRAM
  8. ABSCESS OINTMENT [Concomitant]
     Dosage: 80 MILLIGRAM
  9. SEVREDOL [Concomitant]
     Dosage: 80 MILLIGRAM
  10. NITROFURANTOIN [Concomitant]
     Route: 065
     Dates: start: 20100527, end: 20100630
  11. REVLIMID [Suspect]
     Indication: MULTIPLE MYELOMA
     Dosage: 25 MILLIGRAM
     Route: 048
     Dates: start: 20090209, end: 20100630
  12. DURAGESIC-100 [Concomitant]
     Dosage: 80 MILLIGRAM
  13. OCTAGAM [Concomitant]
     Indication: IMMUNOGLOBULINS
     Route: 051
     Dates: start: 20080423, end: 20100630
  14. IBANDRONATE SODIUM [Concomitant]
     Indication: OSTEOLYSIS
     Route: 051
     Dates: start: 20060918, end: 20100630
  15. NITROFURANTOIN [Concomitant]
     Dosage: 80 MILLIGRAM

REACTIONS (1)
  - ORBITAL PSEUDOTUMOUR [None]
